FAERS Safety Report 7079121-3 (Version None)
Quarter: 2010Q4

REPORT INFORMATION
  Report Type: 
  Country: None (occurrence: None)
  Receive Date: 20101102
  Receipt Date: 20101026
  Transmission Date: 20110411
  Serious: Yes (Other)
  Sender: FDA-Public Use
  Company Number: A0848172A

PATIENT
  Sex: Female

DRUGS (2)
  1. TYKERB [Suspect]
     Dosage: 1250MG PER DAY
     Route: 048
     Dates: start: 20091130, end: 20101026
  2. XELODA [Suspect]
     Dates: end: 20101026

REACTIONS (5)
  - BREAST CANCER [None]
  - DEHYDRATION [None]
  - DIARRHOEA [None]
  - DIZZINESS [None]
  - EAR INFECTION [None]
